FAERS Safety Report 11117370 (Version 1)
Quarter: 2015Q2

REPORT INFORMATION
  Report Type: Spontaneous
  Country: BR (occurrence: BR)
  Receive Date: 20150516
  Receipt Date: 20150516
  Transmission Date: 20150821
  Serious: Yes (Hospitalization, Other)
  Sender: FDA-Public Use
  Company Number: ALCN2015BR002878

PATIENT
  Age: 23 Year
  Sex: Female

DRUGS (4)
  1. NEVANAC [Suspect]
     Active Substance: NEPAFENAC
     Indication: EYE PAIN
     Dosage: 1 GTT, TID
     Route: 047
     Dates: start: 20150424, end: 20150427
  2. CATAFLAM [Concomitant]
     Active Substance: DICLOFENAC POTASSIUM
     Dosage: 2 DF, QD
     Route: 048
     Dates: start: 20150426, end: 20150427
  3. IBUPROFEN. [Concomitant]
     Active Substance: IBUPROFEN
     Indication: EYE PAIN
     Dosage: 1 TABLET, QD
     Route: 048
     Dates: start: 20150420, end: 20150425
  4. PRED FORTE [Concomitant]
     Active Substance: PREDNISOLONE ACETATE
     Indication: EYE PAIN
     Dosage: 1 GTT, QID
     Route: 047
     Dates: start: 20150424, end: 20150427

REACTIONS (6)
  - Drug ineffective [Recovered/Resolved]
  - Vision blurred [Recovered/Resolved]
  - Multiple sclerosis [Unknown]
  - Papilloedema [Unknown]
  - Neuropathy peripheral [Unknown]
  - Expired product administered [Recovered/Resolved]

NARRATIVE: CASE EVENT DATE: 20150424
